FAERS Safety Report 17702605 (Version 2)
Quarter: 2020Q2

REPORT INFORMATION
  Report Type: Spontaneous
  Country: None (occurrence: US)
  Receive Date: 20200423
  Receipt Date: 20200521
  Transmission Date: 20200714
  Serious: No
  Sender: FDA-Public Use
  Company Number: US-MILLICENT HOLDINGS LTD.-MILL20200037

PATIENT
  Age: 50 Year
  Sex: Female

DRUGS (1)
  1. FEMRING [Suspect]
     Active Substance: ESTRADIOL ACETATE
     Indication: MENOPAUSE
     Dosage: 0.05 MG/DAY
     Route: 067
     Dates: start: 202003

REACTIONS (3)
  - Pain [Not Recovered/Not Resolved]
  - Device expulsion [Unknown]
  - Device difficult to use [None]

NARRATIVE: CASE EVENT DATE: 20200417
